FAERS Safety Report 7848373 (Version 2)
Quarter: 2013Q3

REPORT INFORMATION
  Report Type: Spontaneous
  Country: US (occurrence: US)
  Receive Date: 20110309
  Receipt Date: 20130704
  Transmission Date: 20140515
  Serious: Yes (Death)
  Sender: FDA-Public Use
  Company Number: US-ROCHE-762394

PATIENT
  Age: 9 Year
  Sex: Male

DRUGS (2)
  1. BEVACIZUMAB [Suspect]
     Indication: GLIOBLASTOMA
     Route: 065
  2. IRINOTECAN [Concomitant]
     Indication: GLIOBLASTOMA
     Route: 065

REACTIONS (1)
  - Moyamoya disease [Fatal]
